FAERS Safety Report 6446430-8 (Version None)
Quarter: 2009Q4

REPORT INFORMATION
  Report Type: 
  Country: None (occurrence: None)
  Receive Date: 20091119
  Receipt Date: 20091106
  Transmission Date: 20100525
  Serious: Yes (Other)
  Sender: FDA-Public Use
  Company Number: PHHY2009JP39922

PATIENT
  Sex: Male
  Weight: 78 kg

DRUGS (13)
  1. DIOVAN T30230+TAB+HY [Suspect]
     Indication: HYPERTENSION
     Dosage: 40 MG, QD
     Route: 048
     Dates: start: 20080828
  2. CALBLOCK [Concomitant]
     Indication: HYPERTENSION
     Dosage: 16 MG
     Route: 048
     Dates: end: 20090106
  3. ADALAT CC [Concomitant]
     Indication: HYPERTENSION
     Dosage: 40 MG
     Route: 048
     Dates: start: 20090107
  4. ASPIRIN [Concomitant]
     Dosage: 100 MG
     Route: 048
     Dates: start: 20080703
  5. PLAVIX [Concomitant]
     Dosage: 75 MG
     Dates: start: 20080717
  6. BASEN [Concomitant]
     Dosage: 0.6 MG
     Dates: end: 20081103
  7. DAONIL [Concomitant]
     Dosage: 3.5 MG
     Route: 048
  8. DAONIL [Concomitant]
     Dosage: 7.5 MG
     Route: 048
  9. RIFADIN [Concomitant]
     Dosage: 450 MG
     Route: 048
     Dates: end: 20090107
  10. EBUTOL [Concomitant]
     Dosage: 750 MG
     Dates: end: 20090107
  11. ISCOTIN [Concomitant]
     Dosage: 300 MG
     Route: 048
     Dates: end: 20090107
  12. PYRAMIDE [Concomitant]
     Dosage: 1.2 G
     Route: 048
     Dates: end: 20090107
  13. PYDOXAL [Concomitant]
     Dosage: 30 MG
     Route: 048
     Dates: end: 20090107

REACTIONS (1)
  - ATRIOVENTRICULAR BLOCK [None]
